FAERS Safety Report 23666126 (Version 2)
Quarter: 2025Q4

REPORT INFORMATION
  Report Type: Report from Study
  Country: EU (occurrence: EU)
  Receive Date: 20240324
  Receipt Date: 20251018
  Transmission Date: 20260117
  Serious: Yes (Hospitalization, Other)
  Sender: AUROBINDO
  Company Number: EU-AUROBINDO-AUR-APL-2024-012447

PATIENT
  Age: 73 Year
  Sex: Male

DRUGS (5)
  1. PANTOPRAZOLE [Suspect]
     Active Substance: PANTOPRAZOLE
     Indication: Product used for unknown indication
     Dosage: UNK
     Route: 048
     Dates: start: 202302, end: 202302
  2. IOMERON [Suspect]
     Active Substance: IOMEPROL
     Indication: Scan with contrast
     Dosage: 1 DOSAGE FORM
     Route: 042
     Dates: start: 202302, end: 202302
  3. AUGMENTIN [Suspect]
     Active Substance: AMOXICILLIN\CLAVULANATE POTASSIUM
     Indication: Product used for unknown indication
     Dosage: UNK
     Route: 048
     Dates: start: 202302, end: 202302
  4. ASPIRIN [Suspect]
     Active Substance: ASPIRIN
     Indication: Product used for unknown indication
     Dosage: UNK
     Route: 048
     Dates: start: 202302, end: 202302
  5. ACETAMINOPHEN [Concomitant]
     Active Substance: ACETAMINOPHEN
     Indication: Product used for unknown indication
     Dosage: UNK

REACTIONS (1)
  - Drug reaction with eosinophilia and systemic symptoms [Recovered/Resolved]

NARRATIVE: CASE EVENT DATE: 20230208
